FAERS Safety Report 10248591 (Version 1)
Quarter: 2014Q2

REPORT INFORMATION
  Report Type: Spontaneous
  Country: RS (occurrence: None)
  Receive Date: 20140618
  Receipt Date: 20140618
  Transmission Date: 20141212
  Serious: Yes (Other)
  Sender: FDA-Public Use
  Company Number: 2387864

PATIENT
  Age: 60 Year
  Sex: Female

DRUGS (7)
  1. DOCETAXEL [Suspect]
     Indication: INVASIVE DUCTAL BREAST CARCINOMA
  2. INTERFERON ALFA-2A [Suspect]
     Indication: HEPATITIS C
     Dosage: 3MIU IU (1,000,000A) (3 WEEK)
  3. DOXORUBICIN [Suspect]
     Indication: INVASIVE DUCTAL BREAST CARCINOMA
  4. TRASTUZUMAB [Suspect]
     Indication: INVASIVE DUCTAL BREAST CARCINOMA
  5. TRASTUZUMAB [Suspect]
     Indication: INVASIVE DUCTAL BREAST CARCINOMA
  6. CYCLOPHOSPHAMIDE [Suspect]
     Indication: INVASIVE DUCTAL BREAST CARCINOMA
  7. RIBAVIRIN [Suspect]
     Indication: HEPATITIS C

REACTIONS (5)
  - Hepatotoxicity [None]
  - Neutropenia [None]
  - Drug interaction [None]
  - Hepatitis C [None]
  - Infection reactivation [None]
